FAERS Safety Report 6362911-X (Version None)
Quarter: 2009Q3

REPORT INFORMATION
  Report Type: 
  Country: None (occurrence: None)
  Receive Date: 20090919
  Receipt Date: 20090615
  Transmission Date: 20100115
  Serious: No
  Sender: FDA-Public Use
  Company Number: US-ABBOTT-09P-163-0579702-00

PATIENT
  Sex: Male
  Weight: 76.272 kg

DRUGS (2)
  1. HUMIRA [Suspect]
     Indication: PSORIASIS
     Dates: start: 20090331, end: 20090605
  2. HUMIRA [Suspect]
     Dates: start: 20090605

REACTIONS (4)
  - CONSTIPATION [None]
  - HYPERSENSITIVITY [None]
  - RASH MACULAR [None]
  - SINUSITIS [None]
